FAERS Safety Report 5105138-1 (Version None)
Quarter: 2006Q3

REPORT INFORMATION
  Report Type: 
  Country: None (occurrence: None)
  Receive Date: 20060914
  Receipt Date: 20060906
  Transmission Date: 20061208
  Serious: Yes (Other)
  Sender: FDA-Public Use
  Company Number: JP-MERCK-0609USA02097

PATIENT
  Age: 46 Year
  Sex: Female

DRUGS (2)
  1. DECADRON [Suspect]
     Route: 048
  2. [THERAPY UNSPECIFIED] [Suspect]
     Route: 065

REACTIONS (1)
  - CEREBRAL INFARCTION [None]
